FAERS Safety Report 19496007 (Version 1)
Quarter: 2021Q3

REPORT INFORMATION
  Report Type: Spontaneous
  Country: US (occurrence: US)
  Receive Date: 20210701
  Receipt Date: 20210701
  Transmission Date: 20211014
  Serious: Yes (Death, Life-Threatening, Hospitalization)
  Sender: FDA-Public Use
  Company Number: None

PATIENT
  Age: 65 Year
  Sex: Female
  Weight: 61 kg

DRUGS (2)
  1. TOCILIZUMAB. [Suspect]
     Active Substance: TOCILIZUMAB
     Indication: COVID-19
     Dosage: ?          OTHER FREQUENCY:ONCE;?
     Route: 040
     Dates: start: 20210331, end: 20210331
  2. METHYLPREDNISOLONE. [Concomitant]
     Active Substance: METHYLPREDNISOLONE
     Dates: start: 20210228, end: 20210411

REACTIONS (9)
  - Candida infection [None]
  - Bacterial infection [None]
  - Condition aggravated [None]
  - Fungal infection [None]
  - Herpes simplex [None]
  - Pneumonia [None]
  - Viral infection [None]
  - Escherichia infection [None]
  - Hepatic enzyme increased [None]

NARRATIVE: CASE EVENT DATE: 20210411
